FAERS Safety Report 7776148-0 (Version None)
Quarter: 2011Q3

REPORT INFORMATION
  Report Type: 
  Country: None (occurrence: None)
  Receive Date: 20110926
  Receipt Date: 20110919
  Transmission Date: 20111222
  Serious: Yes (Hospitalization, Other)
  Sender: FDA-Public Use
  Company Number: FR-BRISTOL-MYERS SQUIBB COMPANY-16080749

PATIENT
  Age: 86 Year
  Sex: Male

DRUGS (9)
  1. TIAPRIDAL [Interacting]
     Route: 048
     Dates: start: 20110731, end: 20110803
  2. BISOPROLOL FUMARATE [Concomitant]
  3. GALANTAMINE HYDROBROMIDE [Concomitant]
  4. COUMADIN [Suspect]
     Route: 048
     Dates: start: 20090101
  5. MEMANTINE HYDROCHLORIDE [Concomitant]
  6. EFFEXOR [Concomitant]
  7. RAMIPRIL [Concomitant]
  8. LASIX [Concomitant]
  9. ALLOPURINOL [Concomitant]

REACTIONS (3)
  - DRUG INTERACTION [None]
  - FALL [None]
  - INTERNATIONAL NORMALISED RATIO INCREASED [None]
